FAERS Safety Report 8200149-1 (Version None)
Quarter: 2012Q1

REPORT INFORMATION
  Report Type: 
  Country: None (occurrence: None)
  Receive Date: 20120309
  Receipt Date: 20120309
  Transmission Date: 20120608
  Serious: Yes (Other)
  Sender: FDA-Public Use
  Company Number: None

PATIENT
  Sex: Female
  Weight: 67.1324 kg

DRUGS (2)
  1. FLAGYL [Suspect]
     Indication: HELICOBACTER INFECTION
     Dosage: 500 MG 2 X DAY
     Dates: start: 20120208, end: 20120214
  2. BIAXIN [Suspect]
     Indication: HELICOBACTER INFECTION
     Dosage: 500 MG 2 X DAY
     Dates: start: 20120208, end: 20120214

REACTIONS (6)
  - URINE COLOUR ABNORMAL [None]
  - DIZZINESS [None]
  - ABASIA [None]
  - FEELING ABNORMAL [None]
  - SPEECH DISORDER [None]
  - TREMOR [None]
